FAERS Safety Report 19653399 (Version 2)
Quarter: 2021Q4

REPORT INFORMATION
  Report Type: Other
  Country: HR (occurrence: HR)
  Receive Date: 20210804
  Receipt Date: 20211003
  Transmission Date: 20220303
  Serious: Yes (Hospitalization)
  Sender: FDA-Public Use
  Company Number: HR-MLMSERVICE-20210720-3008973-1

PATIENT
  Age: 73 Year
  Sex: Female

DRUGS (1)
  1. IBANDRONIC ACID [Suspect]
     Active Substance: IBANDRONIC ACID
     Indication: Osteoporosis
     Route: 048

REACTIONS (2)
  - Osteonecrosis of jaw [Recovered/Resolved]
  - Jaw fistula [Recovered/Resolved]
